FAERS Safety Report 8348591-2 (Version None)
Quarter: 2012Q2

REPORT INFORMATION
  Report Type: 
  Country: None (occurrence: None)
  Receive Date: 20120510
  Receipt Date: 20120427
  Transmission Date: 20120825
  Serious: Yes (Hospitalization)
  Sender: FDA-Public Use
  Company Number: FR-BIOGENIDEC-2012BI010911

PATIENT
  Age: 46 Year
  Sex: Male

DRUGS (7)
  1. PANTOPRAZOLE [Concomitant]
     Route: 048
  2. TROSPIUM CHLORIDE [Concomitant]
     Route: 048
  3. TYSABRI [Suspect]
     Indication: MULTIPLE SCLEROSIS
     Route: 042
     Dates: start: 20090201, end: 20111020
  4. GABAPENTIN [Concomitant]
     Route: 048
  5. EDUCTYL [Concomitant]
     Route: 054
  6. CLONAZEPAM [Concomitant]
     Route: 048
  7. OMIX SUSTAINED RELEASE [Concomitant]
     Route: 048

REACTIONS (2)
  - PROGRESSIVE MULTIFOCAL LEUKOENCEPHALOPATHY [None]
  - IMMUNE RECONSTITUTION SYNDROME [None]
